FAERS Safety Report 7225674-1 (Version None)
Quarter: 2011Q1

REPORT INFORMATION
  Report Type: 
  Country: None (occurrence: None)
  Receive Date: 20110113
  Receipt Date: 20110111
  Transmission Date: 20110831
  Serious: Yes (Hospitalization)
  Sender: FDA-Public Use
  Company Number: US-BRISTOL-MYERS SQUIBB COMPANY-15435647

PATIENT
  Age: 77 Year
  Sex: Female
  Weight: 81 kg

DRUGS (24)
  1. CYTOXAN [Suspect]
     Indication: BREAST CANCER
     Dosage: RECENT DOSE 18NOV2010
     Route: 042
     Dates: start: 20100915
  2. ADRIAMYCIN PFS [Suspect]
     Indication: BREAST CANCER
     Dosage: RECENT DOSE 18NOV2010
     Route: 042
     Dates: start: 20100915
  3. ETODOLAC [Concomitant]
     Indication: ARTHRITIS
     Route: 048
     Dates: start: 20070101
  4. LEVAQUIN [Concomitant]
     Indication: PROPHYLAXIS
     Dosage: 27SEP10-30SEP10 12OCT10-18OCT10 3NOV-9NOV10 21NOV-30NOV10
     Route: 048
     Dates: start: 20100927, end: 20101130
  5. CARVEDILOL [Concomitant]
     Indication: HYPERTENSION
     Route: 048
     Dates: start: 20040101
  6. ALOXI [Concomitant]
     Indication: PREMEDICATION
     Dosage: 0.25MG:IV 6OCT10,28OCT-29OCT10,18NOV10
     Route: 042
     Dates: start: 20100915, end: 20101118
  7. ASPIRIN [Concomitant]
     Indication: PROPHYLAXIS
     Route: 048
     Dates: start: 20050101
  8. ZETIA [Concomitant]
     Indication: HYPERLIPIDAEMIA
     Route: 048
     Dates: start: 20040101
  9. VICODIN [Concomitant]
     Indication: ARTHRITIS
     Dosage: 1 DF=7-11 TABS
     Route: 048
     Dates: start: 20080101
  10. POTASSIUM [Concomitant]
     Indication: HYPOKALAEMIA
     Dosage: AM
     Route: 048
     Dates: start: 20000101
  11. DILTIAZEM HCL [Concomitant]
     Indication: HYPERTENSION
     Route: 048
     Dates: start: 20040101
  12. MIRALAX [Concomitant]
     Indication: CONSTIPATION
     Dosage: ALSO 17G IN 10 OUNCE OF WATER
     Route: 048
     Dates: start: 20070101
  13. PRBC TRANSFUSION [Concomitant]
     Indication: ANAEMIA
     Dosage: 1DF=1 UNIT
     Route: 042
     Dates: start: 20101206, end: 20101207
  14. HYDROCHLOROTHIAZIDE [Concomitant]
     Indication: HYPERTENSION
     Route: 048
     Dates: start: 19800101
  15. FISH OIL [Concomitant]
     Indication: PROPHYLAXIS
     Route: 048
     Dates: start: 20030101
  16. RAMIPRIL [Concomitant]
     Indication: HYPERTENSION
     Route: 048
     Dates: start: 20040101
  17. M.V.I. [Concomitant]
     Indication: VITAMIN SUPPLEMENTATION
     Route: 048
     Dates: start: 20040101
  18. POTASSIUM CHLORIDE [Concomitant]
  19. WELCHOL [Concomitant]
     Indication: HYPERLIPIDAEMIA
     Route: 048
     Dates: start: 20070101
  20. PROTONIX [Concomitant]
     Indication: GASTROOESOPHAGEAL REFLUX DISEASE
     Dosage: AM
     Route: 048
     Dates: start: 20020101
  21. NIASPAN [Concomitant]
     Indication: HYPERLIPIDAEMIA
     Route: 048
     Dates: start: 20070101
  22. EMEND [Concomitant]
     Indication: PREMEDICATION
     Dosage: 80MGORAL D2X3DY OR 3WKS 16SEP10,7-8OT10,28-29OCT,19-20NOV10 115MG:6OT10,28OCT10,18NOV10
     Route: 042
     Dates: start: 20100915, end: 20101120
  23. DECADRON [Concomitant]
     Indication: PREMEDICATION
     Dosage: 8MGORAL BIDX3DY OF 21DY 15SEP10,27OT-30OT10,5OT-7OT10, 10MGIV B21DYS15OCT,6OC,27-30OT,18NOV10.
     Route: 042
     Dates: start: 20100915, end: 20101118
  24. FUROSEMIDE [Concomitant]
     Indication: PROPHYLAXIS
     Route: 042
     Dates: start: 20101206, end: 20101207

REACTIONS (1)
  - DEHYDRATION [None]
